FAERS Safety Report 23917599 (Version 1)
Quarter: 2024Q2

REPORT INFORMATION
  Report Type: Spontaneous
  Country: EG (occurrence: EG)
  Receive Date: 20240530
  Receipt Date: 20240530
  Transmission Date: 20240716
  Serious: Yes (Hospitalization, Other)
  Sender: FDA-Public Use
  Company Number: EG-NOVOPROD-1224874

PATIENT
  Age: 439 Month
  Sex: Female
  Weight: 142 kg

DRUGS (3)
  1. INSULIN HUMAN [Suspect]
     Active Substance: INSULIN HUMAN
     Indication: Type 2 diabetes mellitus
     Dosage: 70 IU, QD(40 U AT MORNING AND 30 U AT NIGHT)
     Route: 058
     Dates: start: 2019
  2. ALDOMET [Concomitant]
     Active Substance: METHYLDOPA
     Indication: Hypertension
     Dosage: 3 TABLETS PER DAY
     Route: 048
  3. ACTRAPID [Suspect]
     Active Substance: INSULIN HUMAN
     Indication: Type 2 diabetes mellitus
     Dosage: 5 OR 10 IU
     Route: 058
     Dates: start: 202208

REACTIONS (4)
  - Haemorrhage [Unknown]
  - Hyperglycaemia [Unknown]
  - Diabetes mellitus inadequate control [Recovered/Resolved]
  - Maternal exposure during pregnancy [Recovered/Resolved]

NARRATIVE: CASE EVENT DATE: 20230101
